FAERS Safety Report 5535539-9 (Version None)
Quarter: 2007Q4

REPORT INFORMATION
  Report Type: 
  Country: None (occurrence: None)
  Receive Date: 20071120
  Receipt Date: 20070813
  Transmission Date: 20080405
  Serious: No
  Sender: FDA-Public Use
  Company Number: WAES 0708USA02506

PATIENT
  Age: 76 Year
  Sex: Male

DRUGS (11)
  1. JANUVIA [Suspect]
     Indication: DIABETES MELLITUS
     Dosage: 50 MG DAILY PO
     Route: 048
     Dates: start: 20070501, end: 20070807
  2. ALDACTONE [Concomitant]
  3. AMARYL [Concomitant]
  4. LASIX [Concomitant]
  5. MAG-OX 400 TABLETS [Concomitant]
  6. PLAVIX [Concomitant]
  7. TAPAZOLE [Concomitant]
  8. ASPIRIN [Concomitant]
  9. ISOSORBIDE MONONITRATE [Concomitant]
  10. OMEGA-3 MARINE TRIGLYCERIDES [Concomitant]
  11. VITAMINS (UNSPECIFIED) [Concomitant]

REACTIONS (4)
  - ANOREXIA [None]
  - ASTHENIA [None]
  - FEELING ABNORMAL [None]
  - WEIGHT DECREASED [None]
